FAERS Safety Report 7606274-8 (Version None)
Quarter: 2011Q3

REPORT INFORMATION
  Report Type: 
  Country: None (occurrence: None)
  Receive Date: 20110713
  Receipt Date: 20110629
  Transmission Date: 20111222
  Serious: Yes (Other)
  Sender: FDA-Public Use
  Company Number: US-BAYER-2011-056096

PATIENT
  Age: 53 Year
  Sex: Female
  Weight: 81.633 kg

DRUGS (6)
  1. CELEXA [Concomitant]
     Indication: ANXIETY
  2. DETROL LA [Concomitant]
     Dosage: DAILY DOSE 4 MG
  3. CRANBERRY [Concomitant]
     Dosage: 250 MG, UNK
  4. BETASERON [Suspect]
     Dosage: DAILY DOSE .3 MG
     Route: 058
  5. XANAX [Concomitant]
     Indication: ANXIETY
  6. FLAXSEED OIL [Concomitant]

REACTIONS (4)
  - ANXIETY [None]
  - SUICIDE ATTEMPT [None]
  - FATIGUE [None]
  - DEPRESSED MOOD [None]
